FAERS Safety Report 10924450 (Version 2)
Quarter: 2015Q2

REPORT INFORMATION
  Report Type: Spontaneous
  Country: US (occurrence: US)
  Receive Date: 20150318
  Receipt Date: 20150524
  Transmission Date: 20150821
  Serious: No
  Sender: FDA-Public Use
  Company Number: US-JNJFOC-20121006766

PATIENT

DRUGS (2)
  1. KETOCONAZOLE. [Suspect]
     Active Substance: KETOCONAZOLE
     Indication: PRODUCT USED FOR UNKNOWN INDICATION
     Dosage: FOR 15 DAYS
     Route: 065
  2. SEMAGACESTAT [Interacting]
     Active Substance: SEMAGACESTAT
     Indication: PRODUCT USED FOR UNKNOWN INDICATION
     Dosage: DURING PERIOD 1, FOR??10 DAYS. DURING PERIOD 2, SUBJECTS RECEIVED ON DAYS 5 TO 14, SUBJECTS
     Route: 065

REACTIONS (2)
  - Drug interaction [Unknown]
  - Pruritus [Unknown]
